FAERS Safety Report 4480078-X (Version None)
Quarter: 2004Q4

REPORT INFORMATION
  Report Type: 
  Country: None (occurrence: None)
  Receive Date: 20041018
  Receipt Date: 20041005
  Transmission Date: 20050328
  Serious: Yes (Other)
  Sender: FDA-Public Use
  Company Number: 2004058234

PATIENT
  Sex: Male
  Weight: 63.5036 kg

DRUGS (5)
  1. VIAGRA [Suspect]
     Indication: ERECTILE DYSFUNCTION
     Dosage: 25 MG (25 MG, AS NECESSARY), ORAL
     Route: 048
     Dates: start: 19990101
  2. VIAGRA [Suspect]
     Indication: ERECTILE DYSFUNCTION
     Dosage: 25 MG (25 MG, AS NECESSARY), ORAL
     Route: 048
     Dates: start: 20050731
  3. LOVASTATIN [Concomitant]
  4. LISINOPRIL [Suspect]
  5. WARFARIN SODIUM [Suspect]

REACTIONS (4)
  - CONVULSION [None]
  - DRUG INEFFECTIVE [None]
  - PHARMACEUTICAL PRODUCT COMPLAINT [None]
  - THERAPEUTIC RESPONSE DECREASED [None]
